FAERS Safety Report 16724253 (Version 1)
Quarter: 2019Q3

REPORT INFORMATION
  Report Type: Spontaneous
  Country: US (occurrence: US)
  Receive Date: 20190821
  Receipt Date: 20190821
  Transmission Date: 20191005
  Serious: Yes (Hospitalization)
  Sender: FDA-Public Use
  Company Number: US-ELI_LILLY_AND_COMPANY-US201908007306

PATIENT
  Sex: Female

DRUGS (1)
  1. VERZENIO [Suspect]
     Active Substance: ABEMACICLIB
     Indication: BONE CANCER
     Dosage: 150 MG, DAILY(100 MG IN THE MORNING AND 50 MG IN THE EVENING)
     Route: 048
     Dates: start: 201811

REACTIONS (2)
  - Pneumonia [Unknown]
  - Cystitis [Unknown]

NARRATIVE: CASE EVENT DATE: 201904
